FAERS Safety Report 19180847 (Version 1)
Quarter: 2021Q2

REPORT INFORMATION
  Report Type: Spontaneous
  Country: DE (occurrence: DE)
  Receive Date: 20210426
  Receipt Date: 20210426
  Transmission Date: 20210717
  Serious: Yes (Death, Other)
  Sender: FDA-Public Use
  Company Number: DE-PFIZER INC-2021408829

PATIENT

DRUGS (2)
  1. PROSTIN E2 [Concomitant]
     Active Substance: DINOPROSTONE
     Route: 064
  2. CYTOTEC [Suspect]
     Active Substance: MISOPROSTOL
     Indication: LABOUR INDUCTION
     Dosage: 1 DF, 3X/DAY (WHOLE DOSES, INTAKE AT NOON, IN EVENING AND AT NIGHT. 3 DAYS ORAL INTAKE, 1 DAY PAUSE)
     Route: 064
     Dates: start: 202102

REACTIONS (2)
  - Foetal exposure during delivery [Fatal]
  - Sudden infant death syndrome [Fatal]

NARRATIVE: CASE EVENT DATE: 202102
